FAERS Safety Report 5069151-5 (Version None)
Quarter: 2006Q3

REPORT INFORMATION
  Report Type: 
  Country: None (occurrence: None)
  Receive Date: 20060731
  Receipt Date: 20060725
  Transmission Date: 20061208
  Serious: Yes (Hospitalization)
  Sender: FDA-Public Use
  Company Number: 14451

PATIENT
  Age: 27 Year
  Sex: Male

DRUGS (15)
  1. BLEOMYCIN [Suspect]
     Indication: GERM CELL CANCER
     Dates: start: 20060308
  2. BLEOMYCIN [Suspect]
     Indication: GERM CELL CANCER
  3. BLEOMYCIN [Suspect]
     Indication: GERM CELL CANCER
     Dosage: 25 UNITS QD IV
     Route: 042
     Dates: start: 20060624, end: 20060627
  4. IFOSFAMIDE [Suspect]
     Indication: GERM CELL CANCER
     Dosage: 4200 MG IV
     Route: 042
     Dates: start: 20060624
  5. IFOSFAMIDE [Suspect]
     Indication: GERM CELL CANCER
     Dosage: 4200 MG IV
     Route: 042
     Dates: start: 20060626
  6. ENOXAPARIN SODIUM [Concomitant]
  7. ZOFRAN [Concomitant]
  8. PEPCID /00706001/ [Concomitant]
  9. MAGNESIUM OXIDE [Concomitant]
  10. EFFEXOR XR [Concomitant]
  11. SALT AND SODA MOUTHWASH [Concomitant]
  12. ETOPOSIDE [Concomitant]
  13. CISPLATIN [Concomitant]
  14. TAXOL [Concomitant]
  15. OXALIPLATIN [Concomitant]

REACTIONS (17)
  - ACTIVATED PARTIAL THROMBOPLASTIN TIME SHORTENED [None]
  - ANAEMIA [None]
  - ASTHENIA [None]
  - DYSPNOEA [None]
  - FEBRILE NEUTROPENIA [None]
  - INFECTION [None]
  - LYMPHOCYTE PERCENTAGE INCREASED [None]
  - MALAISE [None]
  - MEAN CELL HAEMOGLOBIN CONCENTRATION INCREASED [None]
  - MEAN CELL VOLUME INCREASED [None]
  - MONOCYTE PERCENTAGE INCREASED [None]
  - NAUSEA [None]
  - RED CELL DISTRIBUTION WIDTH INCREASED [None]
  - TACHYCARDIA [None]
  - TACHYPNOEA [None]
  - VOMITING [None]
  - WHITE BLOOD CELL COUNT DECREASED [None]
